FAERS Safety Report 9735130 (Version 1)
Quarter: 2013Q4

REPORT INFORMATION
  Report Type: Spontaneous
  Country: DE (occurrence: None)
  Receive Date: 20131204
  Receipt Date: 20131204
  Transmission Date: 20140711
  Serious: Yes (Other)
  Sender: FDA-Public Use
  Company Number: 1311-1520

PATIENT
  Age: 85 Year
  Sex: Female

DRUGS (6)
  1. EYLEA (AFLIBERCEPT) (AFLIBERCEPT) [Suspect]
     Indication: AGE-RELATED MACULAR DEGENERATION
     Dates: start: 20130705, end: 20130830
  2. LOSARTAN (LOSARTAN) [Concomitant]
  3. LEVAXIN (LEVOTHYROXINE SODIUM) [Concomitant]
  4. SIMVASTATIN (SIMVASTATIN) [Concomitant]
  5. SALURES (BENDROFLUMETHIAZIDE) [Concomitant]
  6. TROMBYL (ACETYLSALICYLIC ACID) [Concomitant]

REACTIONS (1)
  - Alopecia [None]
